FAERS Safety Report 7545674-1 (Version None)
Quarter: 2011Q2

REPORT INFORMATION
  Report Type: 
  Country: None (occurrence: None)
  Receive Date: 20110614
  Receipt Date: 20110606
  Transmission Date: 20111010
  Serious: Yes (Death, Hospitalization, Other)
  Sender: FDA-Public Use
  Company Number: FR-BRISTOL-MYERS SQUIBB COMPANY-15805930

PATIENT
  Age: 47 Year
  Sex: Male

DRUGS (6)
  1. LAMIVUDINE [Interacting]
     Indication: HIV INFECTION
  2. RITONAVIR [Interacting]
     Indication: HIV INFECTION
  3. DIDANOSINE [Interacting]
     Indication: HIV INFECTION
  4. ATAZANAVIR [Suspect]
     Indication: HIV INFECTION
  5. ABACAVIR [Interacting]
     Indication: HIV INFECTION
  6. SORAFENIB [Interacting]
     Indication: HEPATIC NEOPLASM MALIGNANT

REACTIONS (8)
  - ASTHENIA [None]
  - NAUSEA [None]
  - DECREASED APPETITE [None]
  - DIARRHOEA [None]
  - WEIGHT DECREASED [None]
  - DRUG INTERACTION [None]
  - LIVER CARCINOMA RUPTURED [None]
  - ABDOMINAL PAIN [None]
